FAERS Safety Report 9127667 (Version 1)
Quarter: 2013Q1

REPORT INFORMATION
  Report Type: Spontaneous
  Country: US (occurrence: US)
  Receive Date: 20130228
  Receipt Date: 20130228
  Transmission Date: 20140127
  Serious: No
  Sender: FDA-Public Use
  Company Number: US-GLAXOSMITHKLINE-A0990781A

PATIENT
  Age: 38 Year
  Sex: Female

DRUGS (4)
  1. LAMICTAL [Suspect]
     Indication: EPILEPSY
     Dosage: 100MG TWICE PER DAY
     Route: 048
     Dates: start: 20120509
  2. ALBUTEROL INHALER [Concomitant]
  3. TYLENOL EXTRA STRENGTH [Concomitant]
  4. PROTONIX [Concomitant]

REACTIONS (1)
  - Foreign body [Unknown]
